FAERS Safety Report 20457402 (Version 3)
Quarter: 2022Q3

REPORT INFORMATION
  Report Type: Other
  Country: IN (occurrence: None)
  Receive Date: 20220210
  Receipt Date: 20220809
  Transmission Date: 20221027
  Serious: Yes (Death, Other)
  Sender: FDA-Public Use
  Company Number: IN-ROCHE-3020661

PATIENT
  Age: 90 Year
  Sex: Male

DRUGS (1)
  1. TECENTRIQ [Suspect]
     Active Substance: ATEZOLIZUMAB
     Indication: Bladder cancer
     Route: 042
     Dates: start: 20210914, end: 20220527

REACTIONS (4)
  - COVID-19 [Unknown]
  - Dehydration [Unknown]
  - Immobile [Unknown]
  - Death [Fatal]

NARRATIVE: CASE EVENT DATE: 20220719
